FAERS Safety Report 4563443-1 (Version None)
Quarter: 2005Q1

REPORT INFORMATION
  Report Type: 
  Country: None (occurrence: None)
  Receive Date: 20050128
  Receipt Date: 20040519
  Transmission Date: 20050727
  Serious: No
  Sender: FDA-Public Use
  Company Number: US-GLAXOSMITHKLINE-A0511455A

PATIENT
  Sex: Female

DRUGS (6)
  1. WELLBUTRIN [Suspect]
     Indication: DEPRESSION
     Dosage: 150MG PER DAY
     Route: 048
     Dates: start: 20040517
  2. NEURONTIN [Concomitant]
  3. LAMICTAL [Concomitant]
  4. DOXEPIN HCL [Concomitant]
  5. ESTROGEN [Concomitant]
  6. XANAX [Concomitant]

REACTIONS (4)
  - FEELING ABNORMAL [None]
  - INSOMNIA [None]
  - NIGHT SWEATS [None]
  - PALPITATIONS [None]
